FAERS Safety Report 6544908-X (Version None)
Quarter: 2010Q1

REPORT INFORMATION
  Report Type: 
  Country: None (occurrence: None)
  Receive Date: 20100121
  Receipt Date: 20100115
  Transmission Date: 20100710
  Serious: Yes (Hospitalization)
  Sender: FDA-Public Use
  Company Number: US-JNJFOC-20081102734

PATIENT
  Sex: Female
  Weight: 70.76 kg

DRUGS (5)
  1. ORTHO EVRA [Suspect]
     Indication: MENSTRUATION IRREGULAR
     Route: 062
  2. ORTHO EVRA [Suspect]
     Indication: CONTRACEPTION
     Route: 062
  3. TOPROL-XL [Concomitant]
     Indication: DRUG USE FOR UNKNOWN INDICATION
  4. DIOVAN [Concomitant]
     Indication: DRUG USE FOR UNKNOWN INDICATION
  5. PERCOCET [Concomitant]
     Indication: DRUG USE FOR UNKNOWN INDICATION

REACTIONS (4)
  - INAPPROPRIATE SCHEDULE OF DRUG ADMINISTRATION [None]
  - OFF LABEL USE [None]
  - PNEUMONIA ASPIRATION [None]
  - PULMONARY EMBOLISM [None]
